FAERS Safety Report 21004037 (Version 1)
Quarter: 2022Q2

REPORT INFORMATION
  Report Type: Spontaneous
  Country: US (occurrence: None)
  Receive Date: 20220624
  Receipt Date: 20220624
  Transmission Date: 20220720
  Serious: Yes (Other)
  Sender: FDA-Public Use
  Company Number: None

PATIENT
  Age: 43 Year
  Sex: Female
  Weight: 79.6 kg

DRUGS (1)
  1. IRON SUCROSE [Suspect]
     Active Substance: IRON SUCROSE
     Indication: Iron deficiency anaemia
     Dosage: OTHER FREQUENCY : ONCE;?
     Route: 042
     Dates: start: 20220623, end: 20220623

REACTIONS (7)
  - Back pain [None]
  - Muscle spasms [None]
  - Muscle spasms [None]
  - Rash [None]
  - Infusion related reaction [None]
  - Chromaturia [None]
  - Adverse event [None]

NARRATIVE: CASE EVENT DATE: 20220623
